FAERS Safety Report 20678377 (Version 1)
Quarter: 2022Q2

REPORT INFORMATION
  Report Type: Spontaneous
  Country: US (occurrence: US)
  Receive Date: 20220406
  Receipt Date: 20220406
  Transmission Date: 20220720
  Serious: Yes (Other)
  Sender: FDA-Public Use
  Company Number: US-SA-SAC20220405000001

PATIENT
  Age: 43 Year
  Sex: Female

DRUGS (1)
  1. ZANTAC [Suspect]
     Active Substance: RANITIDINE HYDROCHLORIDE
     Indication: Dyspepsia
     Dosage: UNK (PERIODS OF NON-USE (AT LEAST 3 MONTHS WITHOUT USE)
     Dates: start: 199401, end: 200709

REACTIONS (1)
  - Breast cancer stage II [Unknown]

NARRATIVE: CASE EVENT DATE: 20160101
